FAERS Safety Report 10244649 (Version 2)
Quarter: 2015Q2

REPORT INFORMATION
  Report Type: Report from Study
  Country: IE (occurrence: IE)
  Receive Date: 20140618
  Receipt Date: 20150508
  Transmission Date: 20150821
  Serious: Yes (Other)
  Sender: FDA-Public Use
  Company Number: PHFR2014IE004095

PATIENT
  Age: 53 Year
  Sex: Male
  Weight: 121 kg

DRUGS (9)
  1. METHOTREXATE [Suspect]
     Active Substance: METHOTREXATE
     Indication: PSORIASIS
     Dosage: 25 TO 35 MG ONCE WEEKLY
     Route: 065
     Dates: start: 200507, end: 200705
  2. FUMADERM [Suspect]
     Active Substance: DIMETHYL FUMARATE\ETHYL FUMARATE
     Indication: PSORIASIS
     Dosage: 120 MG 3 IN A DAY
     Route: 065
     Dates: start: 200705, end: 200801
  3. ENBREL [Suspect]
     Active Substance: ETANERCEPT
     Indication: PSORIASIS
     Dosage: 50 MG TWICE A WEEK
     Route: 065
     Dates: start: 20090430, end: 201005
  4. HUMIRA [Suspect]
     Active Substance: ADALIMUMAB
     Dosage: 40 MG, 1 IN 1 WEEK
     Route: 058
     Dates: start: 20100715, end: 20101026
  5. RAPTIVA [Suspect]
     Active Substance: EFALIZUMAB
     Indication: PSORIASIS
     Dosage: 1.3 ML, QW
     Route: 058
     Dates: start: 200804, end: 200904
  6. PSORALEN [Concomitant]
     Active Substance: PSORALEN
     Indication: PRODUCT USED FOR UNKNOWN INDICATION
     Dosage: UNK UKN, UNK
     Route: 065
  7. NEORAL [Suspect]
     Active Substance: CYCLOSPORINE
     Indication: PSORIASIS
     Dosage: 4.5 MG/KG, DAILY
     Route: 065
     Dates: start: 200706, end: 200906
  8. HUMIRA [Suspect]
     Active Substance: ADALIMUMAB
     Indication: PSORIASIS
     Dosage: 40 MG, 1 IN 1 WEEK
     Route: 058
     Dates: start: 20100517, end: 20101014
  9. NEORAL [Suspect]
     Active Substance: CYCLOSPORINE
     Dosage: 1.5 TO 2.5 MG/KG DAILY
     Route: 065
     Dates: start: 200906, end: 200910

REACTIONS (3)
  - Lymphadenopathy [Not Recovered/Not Resolved]
  - Malignant melanoma [Recovered/Resolved]
  - Metastatic malignant melanoma [Not Recovered/Not Resolved]

NARRATIVE: CASE EVENT DATE: 20101017
